FAERS Safety Report 5308723-7 (Version None)
Quarter: 2007Q2

REPORT INFORMATION
  Report Type: 
  Country: None (occurrence: None)
  Receive Date: 20070426
  Receipt Date: 20070426
  Transmission Date: 20071010
  Serious: Yes (Other)
  Sender: FDA-Public Use
  Company Number: DE-GLAXOSMITHKLINE-D0052330A

PATIENT

DRUGS (1)
  1. RETROVIR [Suspect]
     Route: 065

REACTIONS (1)
  - HEPATIC ENZYME INCREASED [None]
